FAERS Safety Report 20084121 (Version 1)
Quarter: 2021Q4

REPORT INFORMATION
  Report Type: Spontaneous
  Country: GB (occurrence: GB)
  Receive Date: 20211118
  Receipt Date: 20211118
  Transmission Date: 20220303
  Serious: Yes (Other)
  Sender: FDA-Public Use
  Company Number: GB-CELLTRION INC.-2021GB015081

PATIENT

DRUGS (1)
  1. INFLIXIMAB [Suspect]
     Active Substance: INFLIXIMAB
     Indication: Crohn^s disease
     Dosage: 120 MG, FORTNIGHTLY
     Route: 058
     Dates: end: 20211012

REACTIONS (3)
  - Crohn^s disease [Unknown]
  - Product temperature excursion issue [Unknown]
  - Product supply issue [Unknown]
